FAERS Safety Report 11676376 (Version 3)
Quarter: 2016Q1

REPORT INFORMATION
  Report Type: Spontaneous
  Country: US (occurrence: US)
  Receive Date: 20151028
  Receipt Date: 20160127
  Transmission Date: 20160525
  Serious: Yes (Other)
  Sender: FDA-Public Use
  Company Number: ALCN2015US006669

PATIENT
  Age: 74 Year
  Sex: Female

DRUGS (3)
  1. BSS [Suspect]
     Active Substance: CALCIUM CHLORIDE\MAGNESIUM CHLORIDE\POTASSIUM CHLORIDE\SODIUM ACETATE\SODIUM CHLORIDE\SODIUM CITRATE
     Indication: IRRIGATION THERAPY
     Dosage: UNK UNK, ONCE/SINGLE
     Route: 047
     Dates: start: 20150706, end: 20150706
  2. TRIESENCE [Suspect]
     Active Substance: TRIAMCINOLONE ACETONIDE
     Indication: VITRECTOMY
     Dosage: UNK UNK, ONCE/SINGLE
     Route: 031
     Dates: start: 20150706, end: 20150706
  3. BETADINE [Suspect]
     Active Substance: POVIDONE-IODINE
     Indication: PREOPERATIVE CARE
     Dosage: UNK
     Route: 047
     Dates: start: 20150706, end: 20150706

REACTIONS (5)
  - Vitritis [Recovered/Resolved]
  - Visual impairment [Recovered/Resolved]
  - Off label use [Recovered/Resolved]
  - Pseudoendophthalmitis [Recovered/Resolved]
  - Iritis [Recovered/Resolved]

NARRATIVE: CASE EVENT DATE: 20150706
